FAERS Safety Report 5105279-9 (Version None)
Quarter: 2006Q3

REPORT INFORMATION
  Report Type: 
  Country: None (occurrence: None)
  Receive Date: 20060911
  Receipt Date: 20060828
  Transmission Date: 20061208
  Serious: Yes (Death)
  Sender: FDA-Public Use
  Company Number: T200600958

PATIENT
  Sex: Female

DRUGS (1)
  1. METHADONE HYDROCHLORIDE [Suspect]
     Indication: PAIN
     Dosage: 3 TABLETS EVERY 6 HOURS AS NEEDED, ORAL
     Route: 048
     Dates: start: 20030616, end: 20030617

REACTIONS (2)
  - DRUG TOXICITY [None]
  - OVERDOSE [None]
